FAERS Safety Report 7702327-4 (Version None)
Quarter: 2011Q3

REPORT INFORMATION
  Report Type: 
  Country: None (occurrence: None)
  Receive Date: 20110822
  Receipt Date: 20110815
  Transmission Date: 20111222
  Serious: Yes (Disabling)
  Sender: FDA-Public Use
  Company Number: PHHY2011DK29678

PATIENT
  Sex: Female

DRUGS (3)
  1. METHOTREXATE [Suspect]
     Indication: RHEUMATOID ARTHRITIS
     Dosage: 7.5 MG/WEEKLY
     Route: 058
     Dates: start: 20070607
  2. REMICADE [Concomitant]
     Indication: RHEUMATOID ARTHRITIS
     Dosage: 230 MG, UNK
     Dates: start: 20070920
  3. REMICADE [Concomitant]
     Dosage: 220 MG, UNK
     Route: 017
     Dates: start: 20110208

REACTIONS (1)
  - TENDON RUPTURE [None]
